FAERS Safety Report 10390477 (Version 1)
Quarter: 2014Q3

REPORT INFORMATION
  Report Type: Spontaneous
  Country: US (occurrence: None)
  Receive Date: 20140814
  Receipt Date: 20140814
  Transmission Date: 20150326
  Serious: Yes (Disabling, Other)
  Sender: FDA-Public Use
  Company Number: 2014-19825

PATIENT
  Age: 87 Year
  Sex: Female

DRUGS (1)
  1. EYLEA [Suspect]
     Active Substance: AFLIBERCEPT
     Indication: AGE-RELATED MACULAR DEGENERATION
     Route: 031
     Dates: start: 20130327

REACTIONS (4)
  - Blindness transient [None]
  - Non-infectious endophthalmitis [None]
  - Vitritis [None]
  - Vitreous floaters [None]

NARRATIVE: CASE EVENT DATE: 20140605
